FAERS Safety Report 6706898-6 (Version None)
Quarter: 2010Q2

REPORT INFORMATION
  Report Type: 
  Country: None (occurrence: None)
  Receive Date: 20100430
  Receipt Date: 20100430
  Transmission Date: 20101027
  Serious: Yes (Other)
  Sender: FDA-Public Use
  Company Number: None

PATIENT
  Age: 38 Year
  Sex: Female
  Weight: 72.5755 kg

DRUGS (1)
  1. YASMIN [Suspect]
     Indication: MENSTRUAL CYCLE MANAGEMENT
     Dosage: 1 TABLET 1 TIME A DAY PO
     Route: 048
     Dates: start: 20030601, end: 20100214

REACTIONS (16)
  - ALOPECIA [None]
  - ANXIETY [None]
  - CHEST DISCOMFORT [None]
  - DEPRESSION [None]
  - DIZZINESS [None]
  - DRY MOUTH [None]
  - DYSPNOEA [None]
  - FATIGUE [None]
  - FEELING HOT [None]
  - GALLBLADDER DISORDER [None]
  - LIBIDO DECREASED [None]
  - MIGRAINE [None]
  - MYOCARDIAL INFARCTION [None]
  - PARAESTHESIA [None]
  - THROAT TIGHTNESS [None]
  - VISUAL ACUITY REDUCED [None]
